FAERS Safety Report 6956119-4 (Version None)
Quarter: 2010Q3

REPORT INFORMATION
  Report Type: 
  Country: None (occurrence: None)
  Receive Date: 20100826
  Receipt Date: 20100823
  Transmission Date: 20110219
  Serious: Yes (Life-Threatening)
  Sender: FDA-Public Use
  Company Number: 2010TJ0146

PATIENT
  Age: 66 Year
  Sex: Female

DRUGS (1)
  1. TWINJECT 0.3 [Suspect]
     Indication: HYPERSENSITIVITY
     Dosage: 0.3 MG, ONCE
     Dates: start: 20100820, end: 20100820

REACTIONS (1)
  - DEVICE MALFUNCTION [None]
